FAERS Safety Report 16729614 (Version 2)
Quarter: 2019Q3

REPORT INFORMATION
  Report Type: Spontaneous
  Country: US (occurrence: US)
  Receive Date: 20190822
  Receipt Date: 20190913
  Transmission Date: 20191005
  Serious: Yes (Hospitalization, Other)
  Sender: FDA-Public Use
  Company Number: US-MYLANLABS-2019M1077909

PATIENT
  Age: 32 Year
  Sex: Female

DRUGS (2)
  1. LEVOFLOXACIN. [Concomitant]
     Active Substance: LEVOFLOXACIN
     Indication: PNEUMONIA
     Route: 042
  2. OXACILLIN [Suspect]
     Active Substance: OXACILLIN SODIUM
     Indication: ENDOCARDITIS STAPHYLOCOCCAL
     Dosage: 2 GRAM, Q6H
     Route: 042

REACTIONS (2)
  - Hypersensitivity vasculitis [Recovered/Resolved]
  - Cutaneous vasculitis [Recovered/Resolved]
